FAERS Safety Report 21811871 (Version 1)
Quarter: 2023Q1

REPORT INFORMATION
  Report Type: Spontaneous
  Country: US (occurrence: US)
  Receive Date: 20230103
  Receipt Date: 20230103
  Transmission Date: 20230418
  Serious: Yes (Other)
  Sender: FDA-Public Use
  Company Number: US-ALKERMES INC.-ALK-2022-006172

PATIENT
  Sex: Male

DRUGS (2)
  1. VIVITROL [Suspect]
     Active Substance: NALTREXONE
     Indication: Alcoholism
     Dosage: 380 MILLIGRAM, QMO
     Route: 030
     Dates: start: 202202, end: 202202
  2. VIVITROL [Suspect]
     Active Substance: NALTREXONE
     Indication: Drug dependence

REACTIONS (13)
  - Suicidal ideation [Unknown]
  - Paranoia [Unknown]
  - Memory impairment [Unknown]
  - Hallucination, visual [Unknown]
  - Formication [Unknown]
  - Wrong product administered [Unknown]
  - Withdrawal syndrome [Unknown]
  - Overdose [Unknown]
  - Nightmare [Unknown]
  - Drug dependence [Unknown]
  - Rash [Unknown]
  - Dizziness [Unknown]
  - Weight decreased [Unknown]

NARRATIVE: CASE EVENT DATE: 20220101
